FAERS Safety Report 13336889 (Version 1)
Quarter: 2017Q1

REPORT INFORMATION
  Report Type: Spontaneous
  Country: US (occurrence: US)
  Receive Date: 20170315
  Receipt Date: 20170315
  Transmission Date: 20170428
  Serious: No
  Sender: FDA-Public Use
  Company Number: US-PFIZER INC-2017107489

PATIENT
  Age: 37 Year
  Sex: Female

DRUGS (6)
  1. PEG/L-ASPARAGINASE [Suspect]
     Active Substance: PEGASPARGASE
     Dosage: UNK (2500 IU/M2 ON DAY 4)
  2. VINCRISTINE SULFATE. [Suspect]
     Active Substance: VINCRISTINE SULFATE
     Dosage: 2 MG, UNK (WEEKLY VINCRISTINE 2 MG DAY 1, 8 AND 15)
  3. CYTARABINE. [Suspect]
     Active Substance: CYTARABINE
     Dosage: UNK (ON DAY 1)
  4. METHOTREXATE SODIUM. [Suspect]
     Active Substance: METHOTREXATE SODIUM
     Dosage: UNK (DAY 8 AND 29)
  5. PREDNISONE. [Suspect]
     Active Substance: PREDNISONE
     Dosage: 60 MG/M2, UNK (DIVIDED IN TWO DOSES DAILY 1-29)
  6. DOXORUBICIN HCL [Suspect]
     Active Substance: DOXORUBICIN HYDROCHLORIDE
     Dosage: 25 MG/M2, WEEKLY ON DAY 1, 8, 15 AND 22)

REACTIONS (1)
  - Neoplasm progression [Unknown]
